FAERS Safety Report 22192855 (Version 1)
Quarter: 2023Q2

REPORT INFORMATION
  Report Type: Spontaneous
  Country: US (occurrence: None)
  Receive Date: 20230410
  Receipt Date: 20230410
  Transmission Date: 20230721
  Serious: Yes (Hospitalization)
  Sender: FDA-Public Use
  Company Number: None

PATIENT
  Sex: Female

DRUGS (3)
  1. OPSUMIT [Suspect]
     Active Substance: MACITENTAN
  2. TADALAFIL [Concomitant]
  3. REMODULIN [Concomitant]
     Dosage: FREQUENCY : DAILY;?
     Route: 048
     Dates: start: 201910

REACTIONS (1)
  - Right ventricular failure [None]
